FAERS Safety Report 10519289 (Version 1)
Quarter: 2014Q4

REPORT INFORMATION
  Report Type: Spontaneous
  Country: US (occurrence: None)
  Receive Date: 20141014
  Receipt Date: 20141014
  Transmission Date: 20150528
  Serious: Yes (Hospitalization)
  Sender: FDA-Public Use
  Company Number: None

PATIENT
  Age: 72 Year
  Sex: Male

DRUGS (1)
  1. METOPROLOL [Suspect]
     Active Substance: METOPROLOL
     Dates: start: 20140616

REACTIONS (3)
  - Mental status changes [None]
  - Hypotension [None]
  - Cardiogenic shock [None]

NARRATIVE: CASE EVENT DATE: 20140616
